FAERS Safety Report 12922930 (Version 1)
Quarter: 2016Q4

REPORT INFORMATION
  Report Type: Spontaneous
  Country: US (occurrence: US)
  Receive Date: 20161109
  Receipt Date: 20161109
  Transmission Date: 20170207
  Serious: Yes (Other)
  Sender: FDA-Public Use
  Company Number: US-HORIZON-PRE-0320-2016

PATIENT
  Age: 49 Year
  Sex: Male

DRUGS (3)
  1. PYRIDOSTIGMINE [Concomitant]
     Active Substance: PYRIDOSTIGMINE
     Indication: MYASTHENIA GRAVIS
  2. PREDNISONE. [Suspect]
     Active Substance: PREDNISONE
     Indication: MYASTHENIA GRAVIS
     Dosage: 80 MG DAILY, THEN 40 MG EVERY OTHER DAY
  3. MYCOPHENOLATE [Concomitant]
     Active Substance: MYCOPHENOLIC ACID

REACTIONS (1)
  - Dysarthria [Unknown]
